FAERS Safety Report 5887088-6 (Version None)
Quarter: 2008Q3

REPORT INFORMATION
  Report Type: 
  Country: None (occurrence: None)
  Receive Date: 20080917
  Receipt Date: 20080905
  Transmission Date: 20090109
  Serious: Yes (Other)
  Sender: FDA-Public Use
  Company Number: JP-PFIZER INC-2008045256

PATIENT
  Sex: Female

DRUGS (15)
  1. ZITHROMAX [Suspect]
     Indication: OROPHARYNGEAL PAIN
     Dosage: DAILY DOSE:500MG
     Route: 048
     Dates: start: 20080401, end: 20080403
  2. ZITHROMAX [Suspect]
     Indication: UPPER RESPIRATORY TRACT INFECTION
  3. LOXONIN [Suspect]
     Indication: UPPER RESPIRATORY TRACT INFECTION
     Route: 048
     Dates: start: 20080325, end: 20080401
  4. CLARITHROMYCIN [Suspect]
     Indication: UPPER RESPIRATORY TRACT INFECTION
     Route: 048
     Dates: start: 20080325, end: 20080401
  5. NORVASC [Concomitant]
     Indication: HYPERTENSION
     Route: 048
     Dates: start: 20071106
  6. VALSARTAN [Concomitant]
     Dates: start: 20071106
  7. FLUITRAN [Concomitant]
     Dates: start: 20071120, end: 20080405
  8. SIMVASTATIN [Concomitant]
     Dates: start: 20071106
  9. TALION [Concomitant]
     Dates: start: 20080325, end: 20080405
  10. MONTELUKAST SODIUM [Concomitant]
     Dates: start: 20080401, end: 20080403
  11. HOKUNALIN [Concomitant]
     Dates: start: 20080401, end: 20080403
  12. CODEINE PHOSPHATE [Concomitant]
     Dates: start: 20080401, end: 20080403
  13. RESPLEN [Concomitant]
     Dates: start: 20080325, end: 20080328
  14. MUCODYNE [Concomitant]
     Dates: start: 20080325, end: 20080328
  15. THEOLONG [Concomitant]
     Dates: start: 20080401, end: 20080403

REACTIONS (1)
  - HAEMOLYTIC ANAEMIA [None]
